FAERS Safety Report 4651052-5 (Version None)
Quarter: 2005Q2

REPORT INFORMATION
  Report Type: 
  Country: None (occurrence: None)
  Receive Date: 20050503
  Receipt Date: 20040517
  Transmission Date: 20051028
  Serious: Yes (Other)
  Sender: FDA-Public Use
  Company Number: US-ROCHE-368059

PATIENT
  Age: 46 Year
  Sex: Female
  Weight: 96 kg

DRUGS (2)
  1. PEGASYS [Suspect]
     Indication: HEPATITIS C
     Dosage: FORM: PREFILLED SYRINGES.
     Route: 058
     Dates: start: 20040110, end: 20040524
  2. PEGASYS [Concomitant]
     Route: 058
     Dates: start: 20040525, end: 20040930

REACTIONS (2)
  - EYELID OEDEMA [None]
  - EYELID PAIN [None]
